FAERS Safety Report 20487646 (Version 1)
Quarter: 2022Q1

REPORT INFORMATION
  Report Type: Spontaneous
  Country: US (occurrence: US)
  Receive Date: 20220218
  Receipt Date: 20220218
  Transmission Date: 20220424
  Serious: No
  Sender: FDA-Public Use
  Company Number: US-GLAXOSMITHKLINE-US2022AMR026424

PATIENT
  Sex: Female

DRUGS (1)
  1. BENLYSTA [Suspect]
     Active Substance: BELIMUMAB
     Indication: Systemic lupus erythematosus
     Dosage: 1 DF
     Dates: start: 20220112

REACTIONS (4)
  - Insomnia [Recovered/Resolved]
  - Stomatitis [Not Recovered/Not Resolved]
  - Poor quality sleep [Recovered/Resolved]
  - Malaise [Not Recovered/Not Resolved]
